FAERS Safety Report 22358503 (Version 1)
Quarter: 2023Q2

REPORT INFORMATION
  Report Type: Report from Study
  Country: GB (occurrence: GB)
  Receive Date: 20230524
  Receipt Date: 20230524
  Transmission Date: 20230721
  Serious: Yes (Death, Hospitalization, Other)
  Sender: FDA-Public Use
  Company Number: GB-IPSEN Group, Research and Development-2021-16653

PATIENT
  Age: 75 Year
  Sex: Male
  Weight: 101.2 kg

DRUGS (8)
  1. CABOZANTINIB [Suspect]
     Active Substance: CABOZANTINIB
     Indication: Renal cell carcinoma
     Dosage: 60 MG, QD
     Route: 048
     Dates: start: 20210608, end: 20210701
  2. CABOZANTINIB [Suspect]
     Active Substance: CABOZANTINIB
     Dosage: 40 MG, QD
     Route: 048
     Dates: start: 20210727, end: 20210826
  3. CABOZANTINIB [Suspect]
     Active Substance: CABOZANTINIB
     Dosage: 40 MG, QD
     Route: 048
     Dates: start: 20210831, end: 20210918
  4. CABOZANTINIB [Suspect]
     Active Substance: CABOZANTINIB
     Dosage: 40 MG, QD
     Route: 048
     Dates: start: 20210920, end: 20210927
  5. CABOZANTINIB [Suspect]
     Active Substance: CABOZANTINIB
     Dosage: 20 MG, QD
     Route: 048
     Dates: start: 20210928, end: 20211108
  6. CABOZANTINIB [Suspect]
     Active Substance: CABOZANTINIB
     Dosage: 20 MG, QD
     Route: 048
     Dates: start: 20211110, end: 20220210
  7. SIMVASTATIN [Concomitant]
     Active Substance: SIMVASTATIN
     Indication: Blood cholesterol increased
     Dosage: 40 MG DAILY (ONGOING)
     Route: 048
     Dates: start: 2015
  8. CALCIUM\CHOLECALCIFEROL [Concomitant]
     Active Substance: CALCIUM\CHOLECALCIFEROL
     Indication: General physical condition
     Dosage: 500 MG, DAILY (ONGOING)
     Route: 048
     Dates: start: 20211026

REACTIONS (2)
  - Death [Fatal]
  - Diarrhoea [Recovered/Resolved]

NARRATIVE: CASE EVENT DATE: 20210703
